FAERS Safety Report 5431639-2 (Version None)
Quarter: 2007Q3

REPORT INFORMATION
  Report Type: 
  Country: None (occurrence: None)
  Receive Date: 20070830
  Receipt Date: 20070827
  Transmission Date: 20080115
  Serious: Yes (Hospitalization)
  Sender: FDA-Public Use
  Company Number: US-BAXTER-2007BH006918

PATIENT
  Age: 40 Year
  Sex: Female
  Weight: 64 kg

DRUGS (5)
  1. IMMUNE GLOBULIN INTRAVENOUS (HUMAN) [Suspect]
     Indication: IMMUNODEFICIENCY COMMON VARIABLE
     Route: 042
     Dates: start: 20070101
  2. IMMUNE GLOBULIN INTRAVENOUS (HUMAN) [Suspect]
     Route: 042
     Dates: start: 20070101
  3. TYLENOL (CAPLET) [Concomitant]
     Indication: PREMEDICATION
     Route: 048
  4. BENADRYL [Concomitant]
     Indication: PREMEDICATION
     Route: 048
  5. NEXIUM [Concomitant]
     Indication: DRUG USE FOR UNKNOWN INDICATION
     Route: 048

REACTIONS (1)
  - CEREBROVASCULAR ACCIDENT [None]
